FAERS Safety Report 9685126 (Version 1)
Quarter: 2013Q4

REPORT INFORMATION
  Report Type: Spontaneous
  Country: US (occurrence: US)
  Receive Date: 20131113
  Receipt Date: 20131113
  Transmission Date: 20140711
  Serious: Yes (Other)
  Sender: FDA-Public Use
  Company Number: US-SHIRE-ALL1-2013-07702

PATIENT
  Sex: Male

DRUGS (3)
  1. ADDERALL XR [Suspect]
     Indication: ATTENTION DEFICIT/HYPERACTIVITY DISORDER
     Dosage: 30 MG, OTHER(MON-FRI)
     Route: 048
  2. CLONIDINE [Concomitant]
     Indication: INSOMNIA
     Dosage: 0.1 MG, 1X/DAY:QD
     Route: 048
  3. FLUTICASONE [Concomitant]
     Indication: HYPERSENSITIVITY
     Dosage: 50 ?G, 2X/DAY:BID (A SPRAYS IN EACH NOSTRIL)

REACTIONS (3)
  - Somnambulism [Recovered/Resolved]
  - Sleep disorder [Not Recovered/Not Resolved]
  - Drug prescribing error [Recovered/Resolved]
